FAERS Safety Report 7316231-7 (Version None)
Quarter: 2011Q1

REPORT INFORMATION
  Report Type: 
  Country: None (occurrence: None)
  Receive Date: 20110225
  Receipt Date: 20110222
  Transmission Date: 20110831
  Serious: Yes (Other)
  Sender: FDA-Public Use
  Company Number: BR-ABBOTT-10P-020-0694198-00

PATIENT
  Sex: Female
  Weight: 56 kg

DRUGS (7)
  1. HUMIRA [Suspect]
     Dates: start: 20110101
  2. VALSARTAN [Concomitant]
     Indication: HYPERTENSION
     Dosage: 80/12.5MG DAILY
     Route: 048
     Dates: start: 20060101
  3. HUMIRA [Suspect]
     Indication: RHEUMATOID ARTHRITIS
     Route: 058
     Dates: start: 20050101
  4. METHOTREXATE [Concomitant]
     Indication: RHEUMATOID ARTHRITIS
     Route: 048
     Dates: start: 20080101
  5. DEFLAZACORT [Concomitant]
     Indication: RHEUMATOID ARTHRITIS
     Route: 048
     Dates: start: 20060101
  6. FOLIC ACID [Concomitant]
     Indication: VITAMIN SUPPLEMENTATION
     Route: 048
     Dates: start: 20050101
  7. CALCIUM CARBONATE [Concomitant]
     Indication: PRODUCT USED FOR UNKNOWN INDICATION
     Route: 048
     Dates: start: 20090101

REACTIONS (5)
  - GINGIVAL DISORDER [None]
  - PAIN IN EXTREMITY [None]
  - STOMATITIS [None]
  - DENTAL IMPLANTATION [None]
  - ORAL PAIN [None]
